FAERS Safety Report 7324255-9 (Version None)
Quarter: 2011Q1

REPORT INFORMATION
  Report Type: 
  Country: None (occurrence: None)
  Receive Date: 20110301
  Receipt Date: 20110221
  Transmission Date: 20110831
  Serious: Yes (Other)
  Sender: FDA-Public Use
  Company Number: US-AMGEN-USASP2011006844

PATIENT
  Age: 70 Year
  Sex: Female

DRUGS (3)
  1. ENBREL [Suspect]
     Indication: SJOGREN'S SYNDROME
  2. DILANTIN [Concomitant]
  3. ENBREL [Suspect]
     Indication: RHEUMATOID ARTHRITIS
     Dosage: 50 MG, QWK
     Dates: start: 20101029

REACTIONS (6)
  - COUGH [None]
  - JOINT SWELLING [None]
  - HEAD INJURY [None]
  - FALL [None]
  - ANTICONVULSANT DRUG LEVEL INCREASED [None]
  - INJECTION SITE ERYTHEMA [None]
